FAERS Safety Report 9953808 (Version 2)
Quarter: 2014Q1

REPORT INFORMATION
  Report Type: Spontaneous
  Country: BE (occurrence: BE)
  Receive Date: 20140304
  Receipt Date: 20140319
  Transmission Date: 20141002
  Serious: Yes (Hospitalization, Other)
  Sender: FDA-Public Use
  Company Number: BE-BRISTOL-MYERS SQUIBB COMPANY-20265377

PATIENT
  Age: 68 Year
  Sex: Female

DRUGS (3)
  1. ORENCIA [Suspect]
     Indication: RHEUMATOID ARTHRITIS
     Route: 042
     Dates: start: 20101201, end: 20131010
  2. ACLASTA [Suspect]
     Indication: OSTEOPOROSIS
     Route: 042
     Dates: start: 2012, end: 2013
  3. CELEBREX [Concomitant]

REACTIONS (2)
  - Osteomyelitis [Not Recovered/Not Resolved]
  - Necrosis [Not Recovered/Not Resolved]
